FAERS Safety Report 9708439 (Version 1)
Quarter: 2013Q4

REPORT INFORMATION
  Report Type: Spontaneous
  Country: US (occurrence: US)
  Receive Date: 20131125
  Receipt Date: 20131125
  Transmission Date: 20140711
  Serious: Yes (Other)
  Sender: FDA-Public Use
  Company Number: US-PFIZER INC-2013334781

PATIENT
  Sex: Female

DRUGS (1)
  1. LYRICA [Suspect]
     Dosage: 75MG IN THE MORNING AND TWO 75MG IN EVENING BEFORE BED TIME, UNK
     Dates: end: 201311

REACTIONS (5)
  - Neoplasm malignant [Unknown]
  - Drug withdrawal syndrome [Unknown]
  - Tremor [Unknown]
  - Asthenia [Unknown]
  - Presyncope [Unknown]
